FAERS Safety Report 4447919-3 (Version None)
Quarter: 2004Q3

REPORT INFORMATION
  Report Type: 
  Country: None (occurrence: None)
  Receive Date: 20040909
  Receipt Date: 20040909
  Transmission Date: 20050211
  Serious: Yes (Hospitalization)
  Sender: FDA-Public Use
  Company Number: None

PATIENT
  Age: 2 Month
  Sex: Male
  Weight: 5 kg

DRUGS (1)
  1. ERYTHROMYCIN [Suspect]
     Indication: PNEUMONIA CHLAMYDIAL
     Dosage: 40 MG  Q 6HR  ORAL
     Route: 048
     Dates: start: 20040812, end: 20040825

REACTIONS (1)
  - ACQUIRED PYLORIC STENOSIS [None]
